FAERS Safety Report 7584437-8 (Version None)
Quarter: 2011Q2

REPORT INFORMATION
  Report Type: 
  Country: None (occurrence: None)
  Receive Date: 20110630
  Receipt Date: 20110615
  Transmission Date: 20111010
  Serious: Yes (Other)
  Sender: FDA-Public Use
  Company Number: MX-BIOGENIDEC-2011BI022586

PATIENT
  Age: 56 Year
  Sex: Female

DRUGS (5)
  1. CYMBALTA [Concomitant]
  2. AMANTADINE HCL [Concomitant]
  3. BACLOFEN [Concomitant]
  4. TYSABRI [Suspect]
     Indication: MULTIPLE SCLEROSIS
     Route: 042
     Dates: start: 20090414
  5. EUTIROX [Concomitant]
     Indication: HYPOTHYROIDISM

REACTIONS (1)
  - BASAL CELL CARCINOMA [None]
